FAERS Safety Report 18360690 (Version 1)
Quarter: 2020Q4

REPORT INFORMATION
  Report Type: Spontaneous
  Country: GT (occurrence: GT)
  Receive Date: 20201008
  Receipt Date: 20201008
  Transmission Date: 20210114
  Serious: Yes (Other)
  Sender: FDA-Public Use
  Company Number: GT-SA-2020SA273243

PATIENT

DRUGS (12)
  1. PREDNISONE. [Suspect]
     Active Substance: PREDNISONE
     Indication: CHORIORETINOPATHY
  2. AZATHIOPRINE. [Concomitant]
     Active Substance: AZATHIOPRINE
     Indication: CHORIORETINOPATHY
  3. TRIAMCINOLONE ACETONIDE. [Suspect]
     Active Substance: TRIAMCINOLONE ACETONIDE
     Indication: CHORIORETINOPATHY
  4. TRIAMCINOLONE ACETONIDE. [Suspect]
     Active Substance: TRIAMCINOLONE ACETONIDE
     Indication: CHOROIDITIS
  5. CYCLOSPORINE. [Concomitant]
     Active Substance: CYCLOSPORINE
     Indication: CHOROIDITIS
  6. AZATHIOPRINE. [Concomitant]
     Active Substance: AZATHIOPRINE
     Indication: SEROUS RETINAL DETACHMENT
     Dosage: UNK
  7. PREDNISONE. [Suspect]
     Active Substance: PREDNISONE
     Indication: CHOROIDITIS
  8. TRIAMCINOLONE ACETONIDE. [Suspect]
     Active Substance: TRIAMCINOLONE ACETONIDE
     Indication: SEROUS RETINAL DETACHMENT
     Dosage: UNK (PERIBULBAR INJECTION)
     Route: 031
  9. AZATHIOPRINE. [Concomitant]
     Active Substance: AZATHIOPRINE
     Indication: CHOROIDITIS
  10. PREDNISONE. [Suspect]
     Active Substance: PREDNISONE
     Indication: SEROUS RETINAL DETACHMENT
     Dosage: UNK
     Route: 048
  11. CYCLOSPORINE. [Concomitant]
     Active Substance: CYCLOSPORINE
     Indication: SEROUS RETINAL DETACHMENT
     Dosage: UNK
     Route: 062
  12. CYCLOSPORINE. [Concomitant]
     Active Substance: CYCLOSPORINE
     Indication: CHORIORETINOPATHY

REACTIONS (4)
  - Chorioretinopathy [Recovering/Resolving]
  - Serous retinal detachment [Recovering/Resolving]
  - Condition aggravated [Recovering/Resolving]
  - Visual acuity reduced [Recovering/Resolving]
